FAERS Safety Report 6917244-7 (Version None)
Quarter: 2010Q3

REPORT INFORMATION
  Report Type: 
  Country: None (occurrence: None)
  Receive Date: 20100805
  Receipt Date: 20100724
  Transmission Date: 20110219
  Serious: Yes (Other)
  Sender: FDA-Public Use
  Company Number: 2010-2629

PATIENT
  Age: 48 Year
  Sex: Female
  Weight: 55.4 kg

DRUGS (2)
  1. DYSPORT [Suspect]
     Indication: SKIN WRINKLING
     Dosage: SINGLE CYCLE, PARENTERAL
     Route: 051
     Dates: start: 20100729, end: 20100729
  2. FILLER(ALL OTHER THERAPEUTIC PRODUCTS) [Concomitant]

REACTIONS (3)
  - INJECTION SITE SWELLING [None]
  - ROAD TRAFFIC ACCIDENT [None]
  - SWELLING FACE [None]
